FAERS Safety Report 5382199-6 (Version None)
Quarter: 2007Q3

REPORT INFORMATION
  Report Type: 
  Country: None (occurrence: None)
  Receive Date: 20070709
  Receipt Date: 20070628
  Transmission Date: 20080115
  Serious: Yes (Hospitalization)
  Sender: FDA-Public Use
  Company Number: BR-JNJFOC-20060802936

PATIENT
  Sex: Male

DRUGS (40)
  1. TMC114 [Suspect]
     Dosage: TEMPORARY STOP
     Route: 048
  2. TMC114 [Suspect]
     Indication: HIV INFECTION
     Dosage: TEMPORARY STOP
     Route: 048
  3. RITONAVIR [Suspect]
     Route: 048
  4. RITONAVIR [Suspect]
     Indication: HIV INFECTION
     Dosage: TEMPORARY STOP
     Route: 048
  5. TENOFOVIR [Suspect]
     Route: 048
  6. TENOFOVIR [Suspect]
     Route: 048
  7. TENOFOVIR [Suspect]
     Route: 048
  8. TENOFOVIR [Suspect]
     Indication: HIV INFECTION
     Route: 048
  9. LAMIVUDINE [Suspect]
     Route: 048
  10. LAMIVUDINE [Suspect]
     Route: 048
  11. LAMIVUDINE [Suspect]
     Indication: HIV INFECTION
     Route: 048
  12. LANETTE CREAM WITH UREA [Concomitant]
     Indication: XERODERMA
     Route: 061
  13. HYDROCORTISONE [Concomitant]
     Indication: PRURIGO
     Route: 061
  14. KETOCONAZOLE [Concomitant]
     Indication: PRURIGO
     Route: 061
  15. ASPIRIN [Concomitant]
     Indication: ANGINA PECTORIS
     Route: 048
  16. SULFAMETHOXAZOLE + TRIMETHOPRIM [Concomitant]
     Indication: TOXOPLASMOSIS
     Route: 048
  17. SULFAMETHOXAZOLE + TRIMETHOPRIM [Concomitant]
     Indication: PNEUMOCYSTIS JIROVECI PNEUMONIA
     Route: 048
  18. C VITAMIN [Concomitant]
     Indication: MEDICAL DIET
     Route: 048
  19. GABAPENTIN [Concomitant]
     Route: 048
  20. GABAPENTIN [Concomitant]
     Indication: NEUROPATHY PERIPHERAL
     Route: 048
  21. AZITHROMYCIN [Concomitant]
     Indication: GASTROENTERITIS CRYPTOSPORIDIAL
     Route: 048
  22. AZITHROMYCIN [Concomitant]
     Route: 048
  23. LOPERAMIDE HCL [Concomitant]
     Route: 048
  24. LOPERAMIDE HCL [Concomitant]
     Indication: GASTROENTERITIS CRYPTOSPORIDIAL
     Route: 048
  25. VITAMIN B COMPLEX CAP [Concomitant]
     Indication: MEDICAL DIET
     Route: 048
  26. E VITAMIN [Concomitant]
     Indication: MEDICAL DIET
     Route: 048
  27. DEXTROSE 50% [Concomitant]
     Indication: DEHYDRATION
     Route: 042
  28. DIPYRONE [Concomitant]
     Indication: PYREXIA
     Route: 048
  29. ACETAMINOPHEN [Concomitant]
     Indication: CHEST PAIN
     Route: 048
  30. CODEINE SUL TAB [Concomitant]
     Indication: CHEST PAIN
     Route: 048
  31. SALINE SOLUTION [Concomitant]
     Indication: DEHYDRATION
     Route: 042
  32. SALINE SOLUTION [Concomitant]
     Indication: LACTIC ACIDOSIS
     Route: 042
  33. VITAMIN B COMPLEX CAP [Concomitant]
     Route: 042
  34. C VITAMIN [Concomitant]
     Indication: LACTIC ACIDOSIS
     Route: 042
  35. FLUCONAZOLE [Concomitant]
     Indication: OESOPHAGEAL CANDIDIASIS
     Route: 048
  36. MEGESTROL ACETATE [Concomitant]
     Route: 048
  37. MEGESTROL ACETATE [Concomitant]
     Indication: ANOREXIA
     Route: 048
  38. CINNARIZINE [Concomitant]
     Indication: LABYRINTHITIS
     Route: 048
  39. SPIRAMYCIN [Concomitant]
     Indication: GASTROENTERITIS CRYPTOSPORIDIAL
     Route: 048
  40. CEFEPIME [Concomitant]
     Indication: PNEUMONIA
     Route: 042

REACTIONS (3)
  - LACTIC ACIDOSIS [None]
  - PNEUMONIA [None]
  - URINARY TRACT INFECTION [None]
